FAERS Safety Report 12327993 (Version 1)
Quarter: 2016Q2

REPORT INFORMATION
  Report Type: Spontaneous
  Country: US (occurrence: US)
  Receive Date: 20160503
  Receipt Date: 20160503
  Transmission Date: 20160815
  Serious: No
  Sender: FDA-Public Use
  Company Number: US-WARNER CHILCOTT, LLC-1051340

PATIENT
  Age: 62 Year
  Sex: Male

DRUGS (3)
  1. CALCIUM [Concomitant]
     Active Substance: CALCIUM
  2. MULTIVIT [Concomitant]
     Active Substance: VITAMINS
  3. ATELVIA [Suspect]
     Active Substance: RISEDRONATE SODIUM
     Indication: BONE DENSITY DECREASED
     Route: 048
     Dates: start: 2014, end: 2015

REACTIONS (5)
  - Pain in jaw [Not Recovered/Not Resolved]
  - Trismus [Recovered/Resolved]
  - Tooth disorder [Not Recovered/Not Resolved]
  - Toothache [Not Recovered/Not Resolved]
  - Jaw disorder [Not Recovered/Not Resolved]
